FAERS Safety Report 16552808 (Version 2)
Quarter: 2019Q4

REPORT INFORMATION
  Report Type: Spontaneous
  Country: US (occurrence: US)
  Receive Date: 20190710
  Receipt Date: 20191002
  Transmission Date: 20200122
  Serious: Yes (Other)
  Sender: FDA-Public Use
  Company Number: US-PFIZER INC-2019290634

PATIENT
  Age: 64 Year
  Sex: Female

DRUGS (1)
  1. IBRANCE [Suspect]
     Active Substance: PALBOCICLIB
     Dosage: 125 MG, CYCLIC [1 CAPSULE BY MOUTH DAILY FOR 21 DAYS, THEN OFF FOR 7 DAYS]
     Route: 048
     Dates: start: 20150601

REACTIONS (5)
  - Hepatic steatosis [Unknown]
  - Fatigue [Not Recovered/Not Resolved]
  - Diverticulitis [Unknown]
  - Anaemia [Unknown]
  - Alopecia [Not Recovered/Not Resolved]
